FAERS Safety Report 10716758 (Version 1)
Quarter: 2015Q1

REPORT INFORMATION
  Report Type: Spontaneous
  Country: FR (occurrence: FR)
  Receive Date: 20150116
  Receipt Date: 20150116
  Transmission Date: 20150721
  Serious: Yes (Other)
  Sender: FDA-Public Use
  Company Number: FR-BRISTOL-MYERS SQUIBB COMPANY-BMS-2015-000668

PATIENT
  Age: 89 Year
  Sex: Female

DRUGS (7)
  1. CALCIDOSE                          /00944201/ [Concomitant]
  2. SERESTA [Concomitant]
     Active Substance: OXAZEPAM
  3. DIFFU K [Concomitant]
     Active Substance: POTASSIUM CHLORIDE
  4. TRANSIPEG                          /00754501/ [Concomitant]
     Active Substance: POLYETHYLENE GLYCOL 3350
  5. COUMADINE [Suspect]
     Active Substance: WARFARIN SODIUM
     Indication: THROMBOSIS PROPHYLAXIS
     Dosage: 2 MG, QD
     Route: 048
     Dates: start: 20141128, end: 20141212
  6. COVERSYL                           /00790702/ [Concomitant]
     Active Substance: PERINDOPRIL
  7. AUGMENTIN [Suspect]
     Active Substance: AMOXICILLIN\CLAVULANATE POTASSIUM
     Indication: PNEUMONIA
     Dosage: 1 G, TID
     Route: 065
     Dates: start: 20141126, end: 20141211

REACTIONS (2)
  - Acute kidney injury [Unknown]
  - Rash maculo-papular [Not Recovered/Not Resolved]
